FAERS Safety Report 25803932 (Version 1)
Quarter: 2025Q3

REPORT INFORMATION
  Report Type: Spontaneous
  Country: CN (occurrence: CN)
  Receive Date: 20250915
  Receipt Date: 20250915
  Transmission Date: 20251020
  Serious: Yes (Hospitalization)
  Sender: MYLAN
  Company Number: CN-MYLANLABS-2025M1078583

PATIENT
  Age: 58 Year
  Sex: Male

DRUGS (20)
  1. NITROGLYCERIN [Suspect]
     Active Substance: NITROGLYCERIN
     Indication: Acute coronary syndrome
  2. NITROGLYCERIN [Suspect]
     Active Substance: NITROGLYCERIN
     Indication: Cardiac failure
     Route: 065
  3. NITROGLYCERIN [Suspect]
     Active Substance: NITROGLYCERIN
     Route: 065
  4. NITROGLYCERIN [Suspect]
     Active Substance: NITROGLYCERIN
  5. ATORVASTATIN [Suspect]
     Active Substance: ATORVASTATIN
     Indication: Coronary artery disease
     Dosage: 20 MILLIGRAM, QD
  6. ATORVASTATIN [Suspect]
     Active Substance: ATORVASTATIN
     Indication: Cerebral infarction
     Dosage: 20 MILLIGRAM, QD
     Route: 048
  7. ATORVASTATIN [Suspect]
     Active Substance: ATORVASTATIN
     Dosage: 20 MILLIGRAM, QD
     Route: 048
  8. ATORVASTATIN [Suspect]
     Active Substance: ATORVASTATIN
     Dosage: 20 MILLIGRAM, QD
  9. ASPIRIN [Suspect]
     Active Substance: ASPIRIN
     Indication: Coronary artery disease
     Dosage: 100 MILLIGRAM, QD, ENTERIC-COATED
  10. ASPIRIN [Suspect]
     Active Substance: ASPIRIN
     Indication: Cerebral infarction
     Dosage: 100 MILLIGRAM, QD, ENTERIC-COATED
     Route: 048
  11. ASPIRIN [Suspect]
     Active Substance: ASPIRIN
     Indication: Acute myocardial infarction
     Dosage: 100 MILLIGRAM, QD, ENTERIC-COATED
     Route: 048
  12. ASPIRIN [Suspect]
     Active Substance: ASPIRIN
     Dosage: 100 MILLIGRAM, QD, ENTERIC-COATED
  13. CLOPIDOGREL [Suspect]
     Active Substance: CLOPIDOGREL BISULFATE
     Indication: Coronary artery disease
     Dosage: 50 MILLIGRAM, QD
  14. CLOPIDOGREL [Suspect]
     Active Substance: CLOPIDOGREL BISULFATE
     Indication: Cerebral infarction
     Dosage: 50 MILLIGRAM, QD
     Route: 048
  15. CLOPIDOGREL [Suspect]
     Active Substance: CLOPIDOGREL BISULFATE
     Dosage: 50 MILLIGRAM, QD
     Route: 048
  16. CLOPIDOGREL [Suspect]
     Active Substance: CLOPIDOGREL BISULFATE
     Dosage: 50 MILLIGRAM, QD
  17. TICAGRELOR [Suspect]
     Active Substance: TICAGRELOR
     Indication: Anticoagulant therapy
     Dosage: 20 MILLIGRAM, QD
  18. TICAGRELOR [Suspect]
     Active Substance: TICAGRELOR
     Dosage: 20 MILLIGRAM, QD
     Route: 065
  19. TICAGRELOR [Suspect]
     Active Substance: TICAGRELOR
     Dosage: 20 MILLIGRAM, QD
     Route: 065
  20. TICAGRELOR [Suspect]
     Active Substance: TICAGRELOR
     Dosage: 20 MILLIGRAM, QD

REACTIONS (1)
  - Drug ineffective [Unknown]
